FAERS Safety Report 15228723 (Version 1)
Quarter: 2018Q3

REPORT INFORMATION
  Report Type: Spontaneous
  Country: US (occurrence: US)
  Receive Date: 20180801
  Receipt Date: 20180801
  Transmission Date: 20181010
  Serious: Yes (Hospitalization)
  Sender: FDA-Public Use
  Company Number: US-MALLINCKRODT-T201802640

PATIENT
  Sex: Female
  Weight: 113 kg

DRUGS (1)
  1. H.P. ACTHAR [Suspect]
     Active Substance: CORTICOTROPIN
     Indication: RHEUMATOID ARTHRITIS
     Dosage: 80 UNITS/ 1 ML, TWICE A WEEK (WEDNESDAY AND SATURDAY)
     Route: 058
     Dates: start: 20180502

REACTIONS (2)
  - Drug ineffective [Unknown]
  - Sepsis [Unknown]

NARRATIVE: CASE EVENT DATE: 2018
